FAERS Safety Report 7213184-7 (Version None)
Quarter: 2011Q1

REPORT INFORMATION
  Report Type: 
  Country: None (occurrence: None)
  Receive Date: 20110106
  Receipt Date: 20101226
  Transmission Date: 20110831
  Serious: No
  Sender: FDA-Public Use
  Company Number: US-B.I. PHARMACEUTICALS,INC./RIDGEFIELD-2011-BP-00126BP

PATIENT
  Sex: Male

DRUGS (7)
  1. SIMVASTATIN [Concomitant]
     Indication: BLOOD CHOLESTEROL INCREASED
  2. SYNTHROID [Concomitant]
     Indication: HYPOTHYROIDISM
  3. PANTOPAZOLE [Concomitant]
     Indication: GASTROOESOPHAGEAL REFLUX DISEASE
  4. PRADAXA [Suspect]
     Indication: ATRIAL FIBRILLATION
     Dosage: 300 MG
     Route: 048
     Dates: start: 20101210
  5. TOPROL-XL [Concomitant]
  6. ENALAPRIL [Concomitant]
     Indication: HYPERTENSION
  7. TERAZOSIN HCL [Concomitant]
     Indication: PROSTATOMEGALY

REACTIONS (2)
  - ABDOMINAL DISCOMFORT [None]
  - APHTHOUS STOMATITIS [None]
